FAERS Safety Report 17813136 (Version 3)
Quarter: 2020Q2

REPORT INFORMATION
  Report Type: Spontaneous
  Country: US (occurrence: US)
  Receive Date: 20200521
  Receipt Date: 20200615
  Transmission Date: 20200714
  Serious: Yes (Other)
  Sender: FDA-Public Use
  Company Number: US-BAYER-2020-085361

PATIENT
  Age: 44 Year
  Sex: Female

DRUGS (1)
  1. MIRENA [Suspect]
     Active Substance: LEVONORGESTREL
     Indication: CONTRACEPTION
     Dosage: 20 ?G PER DAY CONTINUOUSLY
     Route: 015
     Dates: start: 20170509

REACTIONS (7)
  - Post procedural discomfort [None]
  - Device use issue [None]
  - Complication of device removal [Not Recovered/Not Resolved]
  - Dyspareunia [None]
  - Polymenorrhoea [None]
  - Device breakage [None]
  - Medical device pain [None]

NARRATIVE: CASE EVENT DATE: 2017
